FAERS Safety Report 15119497 (Version 8)
Quarter: 2019Q1

REPORT INFORMATION
  Report Type: Spontaneous
  Country: US (occurrence: US)
  Receive Date: 20180709
  Receipt Date: 20190128
  Transmission Date: 20190417
  Serious: No
  Sender: FDA-Public Use
  Company Number: US-PFIZER INC-2018270460

PATIENT
  Age: 77 Year
  Sex: Female
  Weight: 76 kg

DRUGS (6)
  1. IBRANCE [Suspect]
     Active Substance: PALBOCICLIB
     Dosage: 125 MG, CYCLIC (ONCE A DAY FOR 21 DAYS, OFF 7 DAYS)
     Dates: start: 2018, end: 2018
  2. IBRANCE [Suspect]
     Active Substance: PALBOCICLIB
     Dosage: 100 MG, UNK
     Dates: start: 2018
  3. FULVESTRANT. [Concomitant]
     Active Substance: FULVESTRANT
     Dosage: UNK, MONTHLY
     Dates: start: 201802
  4. IBRANCE [Suspect]
     Active Substance: PALBOCICLIB
     Dosage: 125 MG, CYCLIC (ONCE A DAY FOR 21 DAYS, OFF 7 DAYS)
     Route: 048
     Dates: start: 201802, end: 2018
  5. IBRANCE [Suspect]
     Active Substance: PALBOCICLIB
     Indication: BREAST CANCER METASTATIC
     Dosage: 125 MG, CYCLIC (ONCE A DAY FOR 21 DAYS, OFF 7 DAYS)
     Dates: start: 20180131, end: 2018
  6. FULVESTRANT. [Concomitant]
     Active Substance: FULVESTRANT
     Indication: BREAST CANCER FEMALE
     Dosage: 1000 MG, DAILY (TWO DOSES OF 500 MG )
     Dates: start: 20180131, end: 2018

REACTIONS (11)
  - Malaise [Unknown]
  - Loss of personal independence in daily activities [Unknown]
  - Product dose omission [Unknown]
  - Pain [Unknown]
  - White blood cell count decreased [Not Recovered/Not Resolved]
  - Memory impairment [Unknown]
  - Feeling abnormal [Recovered/Resolved]
  - Fatigue [Unknown]
  - Full blood count decreased [Unknown]
  - Dizziness [Recovered/Resolved]
  - Dermatitis contact [Recovered/Resolved]

NARRATIVE: CASE EVENT DATE: 2018
